FAERS Safety Report 6064614-8 (Version None)
Quarter: 2009Q1

REPORT INFORMATION
  Report Type: 
  Country: None (occurrence: None)
  Receive Date: 20090203
  Receipt Date: 20090203
  Transmission Date: 20090719
  Serious: Yes (Hospitalization)
  Sender: FDA-Public Use
  Company Number: None

PATIENT
  Sex: Female
  Weight: 71.2147 kg

DRUGS (3)
  1. ELOXATIN [Suspect]
     Indication: ADENOCARCINOMA
     Dosage: ONCE IV
     Route: 042
     Dates: start: 20080228, end: 20080228
  2. ELOXATIN [Suspect]
     Indication: COLON CANCER
     Dosage: ONCE IV
     Route: 042
     Dates: start: 20080228, end: 20080228
  3. FLUOROURACIL [Suspect]

REACTIONS (7)
  - ABDOMINAL PAIN UPPER [None]
  - BLOOD PRESSURE INCREASED [None]
  - DYSPNOEA [None]
  - FEELING ABNORMAL [None]
  - HYPOAESTHESIA ORAL [None]
  - PYREXIA [None]
  - VOMITING [None]
